FAERS Safety Report 19634497 (Version 1)
Quarter: 2021Q3

REPORT INFORMATION
  Report Type: Spontaneous
  Country: US (occurrence: US)
  Receive Date: 20210729
  Receipt Date: 20210729
  Transmission Date: 20211014
  Serious: No
  Sender: FDA-Public Use
  Company Number: US-PARATEK PHARMACEUTICALS, INC.-2021PTK00088

PATIENT
  Age: 77 Year
  Sex: Female
  Weight: 63.49 kg

DRUGS (10)
  1. DIAZEPAM. [Concomitant]
     Active Substance: DIAZEPAM
  2. NUZYRA [Suspect]
     Active Substance: OMADACYCLINE
     Indication: CELLULITIS
     Dosage: 300 MG, 1X/DAY
     Route: 048
     Dates: start: 20210609, end: 20210611
  3. PRAMIPEXOLE. [Concomitant]
     Active Substance: PRAMIPEXOLE
  4. ATORVASTATIN [Concomitant]
     Active Substance: ATORVASTATIN
  5. ESCITALOPRAM [Concomitant]
     Active Substance: ESCITALOPRAM OXALATE
  6. OXYCODONE/ACETAMINOPHEN [Concomitant]
     Active Substance: ACETAMINOPHEN\OXYCODONE HYDROCHLORIDE
     Dosage: UNK, 2X/DAY
  7. VITAMIN B [Concomitant]
     Active Substance: VITAMIN B
  8. ELIQUIS [Concomitant]
     Active Substance: APIXABAN
  9. METOPROLOL. [Concomitant]
     Active Substance: METOPROLOL
  10. NUZYRA [Suspect]
     Active Substance: OMADACYCLINE
     Indication: SYNOVIAL CYST
     Dosage: 300 MG, 1X/DAY
     Route: 048
     Dates: start: 20210614, end: 20210623

REACTIONS (3)
  - Vomiting [Recovered/Resolved]
  - Nausea [Recovered/Resolved]
  - Therapy interrupted [Recovered/Resolved]

NARRATIVE: CASE EVENT DATE: 202106
